FAERS Safety Report 17478961 (Version 1)
Quarter: 2020Q1

REPORT INFORMATION
  Report Type: Spontaneous
  Country: US (occurrence: US)
  Receive Date: 20200228
  Receipt Date: 20200228
  Transmission Date: 20200409
  Serious: Yes (Other)
  Sender: FDA-Public Use
  Company Number: US-SHIRE-US202007618

PATIENT
  Sex: Male
  Weight: 85.71 kg

DRUGS (2)
  1. LIALDA [Suspect]
     Active Substance: MESALAMINE
     Indication: COLITIS ULCERATIVE
     Dosage: 1.2 GRAM, 1X/DAY:QD
     Route: 048
     Dates: start: 2015
  2. AVODART [Concomitant]
     Active Substance: DUTASTERIDE
     Indication: PROSTATIC DISORDER

REACTIONS (2)
  - Colitis ulcerative [Recovered/Resolved]
  - Therapeutic product effect decreased [Unknown]

NARRATIVE: CASE EVENT DATE: 2018
